FAERS Safety Report 13097809 (Version 1)
Quarter: 2017Q1

REPORT INFORMATION
  Report Type: Spontaneous
  Country: US (occurrence: US)
  Receive Date: 20170109
  Receipt Date: 20170109
  Transmission Date: 20170428
  Serious: No
  Sender: FDA-Public Use
  Company Number: US-BAYER-2017-004092

PATIENT
  Age: 70 Year
  Sex: Female
  Weight: 57 kg

DRUGS (1)
  1. CHLOR-TRIMETON [Suspect]
     Active Substance: CHLORPHENIRAMINE MALEATE
     Indication: EAR PAIN
     Dosage: 1 DF,EVERY 4 TO 6 HOURS
     Route: 048

REACTIONS (3)
  - Expired product administered [Unknown]
  - Product use issue [Unknown]
  - Therapeutic response unexpected [Unknown]
